FAERS Safety Report 7296162-1 (Version None)
Quarter: 2011Q1

REPORT INFORMATION
  Report Type: 
  Country: None (occurrence: None)
  Receive Date: 20110216
  Receipt Date: 20110210
  Transmission Date: 20110831
  Serious: Yes (Hospitalization, Other)
  Sender: FDA-Public Use
  Company Number: FR-PFIZER INC-2010151871

PATIENT
  Age: 47 Year
  Sex: Female
  Weight: 88 kg

DRUGS (1)
  1. ALDACTONE [Suspect]
     Indication: HYPERTENSION
     Dosage: 50 MG, 1X/DAY
     Route: 048
     Dates: start: 20100801, end: 20101111

REACTIONS (2)
  - NEPHROLITHIASIS [None]
  - PANCREATITIS ACUTE [None]
